FAERS Safety Report 7746931-6 (Version None)
Quarter: 2011Q3

REPORT INFORMATION
  Report Type: 
  Country: None (occurrence: None)
  Receive Date: 20110913
  Receipt Date: 20110830
  Transmission Date: 20111222
  Serious: Yes (Hospitalization, Other)
  Sender: FDA-Public Use
  Company Number: PHHY2011FR78076

PATIENT
  Sex: Male

DRUGS (14)
  1. NITROGLYCERIN [Suspect]
     Dosage: 5 MG PER 24 HOURS
     Route: 062
     Dates: end: 20110702
  2. RAMIPRIL [Suspect]
     Dosage: 2.5 MG, BID
     Route: 048
     Dates: end: 20110630
  3. METOPROLOL TARTRATE [Concomitant]
  4. POTASSIUM CHLORIDE [Concomitant]
  5. ESOMEPRAZOLE SODIUM [Concomitant]
  6. MOVIPREP [Concomitant]
  7. ASPIRIN [Concomitant]
  8. ATARAX [Concomitant]
  9. VALSARTAN  AND HYDROCHLOROTHIAZIDE [Suspect]
     Dosage: 165 MG VALSARTAN AND 12.5 MG HYDROCHLOROTHIAZIDE, ONCE DAILY
     Route: 048
     Dates: start: 20110201, end: 20110719
  10. SODIUM BICARBONATE [Concomitant]
  11. PRAVASTATIN [Suspect]
     Dosage: 40 MG, QD
     Route: 048
     Dates: end: 20110702
  12. PLAVIX [Concomitant]
  13. AMLODIPINE BESYLATE [Suspect]
     Dosage: 5 MG, BID
     Route: 048
     Dates: end: 20110630
  14. SODIUM CHLORIDE [Concomitant]

REACTIONS (12)
  - ACUTE PULMONARY OEDEMA [None]
  - PSORIASIS [None]
  - ENDOCARDITIS STAPHYLOCOCCAL [None]
  - ECZEMA [None]
  - SKIN PLAQUE [None]
  - STAPHYLOCOCCAL BACTERAEMIA [None]
  - DRY SKIN [None]
  - ERYTHEMA [None]
  - BLOOD IMMUNOGLOBULIN E INCREASED [None]
  - TOXIC SKIN ERUPTION [None]
  - SKIN LESION [None]
  - PRURITUS [None]
